FAERS Safety Report 18522022 (Version 1)
Quarter: 2020Q4

REPORT INFORMATION
  Report Type: Spontaneous
  Country: US (occurrence: US)
  Receive Date: 20201119
  Receipt Date: 20201119
  Transmission Date: 20210114
  Serious: Yes (Hospitalization)
  Sender: FDA-Public Use
  Company Number: None

PATIENT
  Age: 29 Year
  Sex: Female

DRUGS (2)
  1. HUMIRA [Suspect]
     Active Substance: ADALIMUMAB
     Indication: DERMATITIS ATOPIC
     Dosage: ?          OTHER FREQUENCY:ONCE A WEEK;?
     Route: 058
     Dates: start: 20200401
  2. METRONIDAZOL 500MG [Concomitant]
     Active Substance: METRONIDAZOLE

REACTIONS (7)
  - Dyspnoea [None]
  - Condition aggravated [None]
  - Fatigue [None]
  - Syncope [None]
  - Headache [None]
  - Arthralgia [None]
  - Dizziness [None]
